FAERS Safety Report 6229277-7 (Version None)
Quarter: 2009Q2

REPORT INFORMATION
  Report Type: 
  Country: None (occurrence: None)
  Receive Date: 20090615
  Receipt Date: 20090513
  Transmission Date: 20091009
  Serious: No
  Sender: FDA-Public Use
  Company Number: US-BAYER-200920865NA

PATIENT
  Age: 63 Year
  Sex: Female
  Weight: 98 kg

DRUGS (9)
  1. AVELOX [Suspect]
     Indication: PNEUMONIA
     Dates: start: 20090401
  2. PEGASYS [Concomitant]
     Indication: HEPATITIS C
     Route: 058
     Dates: start: 20060907, end: 20090421
  3. RIBAVIRIN [Concomitant]
     Indication: HEPATITIS C
     Dosage: TOTAL DAILY DOSE: 1200 MG  UNIT DOSE: 200 MG
     Route: 048
     Dates: start: 20060907, end: 20090421
  4. ASPIRIN [Concomitant]
  5. PLAVIX [Concomitant]
  6. LASIX [Concomitant]
  7. PRAVASTATIN [Concomitant]
  8. K DUR [Concomitant]
  9. DARVOCET [Concomitant]

REACTIONS (1)
  - ADVERSE REACTION [None]
